FAERS Safety Report 22102198 (Version 1)
Quarter: 2023Q1

REPORT INFORMATION
  Report Type: Other
  Country: CA (occurrence: CA)
  Receive Date: 20230316
  Receipt Date: 20230316
  Transmission Date: 20230417
  Serious: Yes (Hospitalization, Other)
  Sender: FDA-Public Use
  Company Number: CA-CELLTRION INC.-2023CA005070

PATIENT

DRUGS (20)
  1. RITUXIMAB [Suspect]
     Active Substance: RITUXIMAB
     Indication: B-cell lymphoma
     Dosage: 660 MILLIGRAM
  2. CYTARABINE [Suspect]
     Active Substance: CYTARABINE
     Indication: Product used for unknown indication
     Dosage: 3540 MILLIGRAM
  3. CYTARABINE [Suspect]
     Active Substance: CYTARABINE
     Dosage: 40 MILLIGRAM
     Route: 037
  4. HYDROCORTISONE [Suspect]
     Active Substance: HYDROCORTISONE
     Indication: Product used for unknown indication
     Dosage: 100 MILLIGRAM
     Route: 037
  5. THIOTEPA [Suspect]
     Active Substance: THIOTEPA
     Indication: Product used for unknown indication
     Dosage: 53 MILLIGRAM
  6. ACETAMINOPHEN [Concomitant]
     Active Substance: ACETAMINOPHEN
  7. DEXAMETHASONE [Concomitant]
     Active Substance: DEXAMETHASONE
  8. DIPHENHYDRAMINE [Concomitant]
     Active Substance: DIPHENHYDRAMINE
  9. FILGRASTIM [Concomitant]
     Active Substance: FILGRASTIM
  10. LEUCOVORIN [Concomitant]
     Active Substance: LEUCOVORIN
  11. FUROSEMIDE [Concomitant]
     Active Substance: FUROSEMIDE
  12. GLYCOPYRROLATE [Concomitant]
     Active Substance: GLYCOPYRROLATE
  13. LEVOFLOXACIN [Concomitant]
     Active Substance: LEVOFLOXACIN
  14. LORAZEPAM [Concomitant]
     Active Substance: LORAZEPAM
     Route: 065
  15. METHOTREXATE [Suspect]
     Active Substance: METHOTREXATE
     Indication: Product used for unknown indication
     Dosage: 6200 MILLIGRAM
     Route: 042
  16. METHOTREXATE [Suspect]
     Active Substance: METHOTREXATE
     Dosage: 15 MILLIGRAM
     Route: 037
  17. METOCLOPRAMIDE [Concomitant]
     Active Substance: METOCLOPRAMIDE
  18. ONDANSETRON [Concomitant]
     Active Substance: ONDANSETRON
  19. PROCHLORPERAZINE [Concomitant]
     Active Substance: PROCHLORPERAZINE
  20. SULFAMETHOXAZOLE\TRIMETHOPRIM [Concomitant]
     Active Substance: SULFAMETHOXAZOLE\TRIMETHOPRIM

REACTIONS (4)
  - Atypical pneumonia [Recovered/Resolved]
  - Febrile neutropenia [Recovered/Resolved]
  - Systemic candida [Recovered/Resolved]
  - Underdose [Unknown]
